FAERS Safety Report 11421983 (Version 4)
Quarter: 2015Q4

REPORT INFORMATION
  Report Type: Report from Study
  Country: CA (occurrence: CA)
  Receive Date: 20150827
  Receipt Date: 20151125
  Transmission Date: 20160304
  Serious: Yes (Life-Threatening, Other)
  Sender: FDA-Public Use
  Company Number: CA-ROCHE-1492106

PATIENT
  Age: 42 Year
  Sex: Female
  Weight: 124 kg

DRUGS (19)
  1. INDOMETHACIN. [Concomitant]
     Active Substance: INDOMETHACIN
  2. VITAMIN E [Concomitant]
     Active Substance: .ALPHA.-TOCOPHEROL
  3. ALVESCO [Concomitant]
     Active Substance: CICLESONIDE
     Dosage: AEROSOL
     Route: 065
  4. ACTEMRA [Suspect]
     Active Substance: TOCILIZUMAB
     Route: 042
     Dates: start: 20150804
  5. METHOTREXATE [Concomitant]
     Active Substance: METHOTREXATE
  6. FOLIC ACID. [Concomitant]
     Active Substance: FOLIC ACID
  7. TOPIRAMATE. [Concomitant]
     Active Substance: TOPIRAMATE
  8. RISEDRONATE [Concomitant]
     Active Substance: RISEDRONATE SODIUM
  9. ACTEMRA [Suspect]
     Active Substance: TOCILIZUMAB
     Route: 042
     Dates: start: 20141120
  10. ELTROXIN [Concomitant]
     Active Substance: LEVOTHYROXINE
  11. CYCLOBENZAPRINE [Concomitant]
     Active Substance: CYCLOBENZAPRINE
  12. PANTOPRAZOLE [Concomitant]
     Active Substance: PANTOPRAZOLE SODIUM
  13. RIZATRIPTAN. [Concomitant]
     Active Substance: RIZATRIPTAN
  14. DIANNEXIN [Concomitant]
     Active Substance: DIANNEXIN
     Indication: ACNE
  15. ACTEMRA [Suspect]
     Active Substance: TOCILIZUMAB
     Indication: RHEUMATOID ARTHRITIS
     Route: 042
     Dates: start: 20140826
  16. COLCHICINE. [Concomitant]
     Active Substance: COLCHICINE
  17. HYDROCHLOROTHIAZIDE. [Concomitant]
     Active Substance: HYDROCHLOROTHIAZIDE
  18. PREDNISONE. [Concomitant]
     Active Substance: PREDNISONE
  19. VENTOLIN [Concomitant]
     Active Substance: ALBUTEROL SULFATE

REACTIONS (15)
  - Weight decreased [Unknown]
  - Weight increased [Unknown]
  - White blood cell count increased [Not Recovered/Not Resolved]
  - Food poisoning [Unknown]
  - Burning sensation [Not Recovered/Not Resolved]
  - Hypoaesthesia [Not Recovered/Not Resolved]
  - Weight increased [Unknown]
  - Pulmonary thrombosis [Unknown]
  - Pain [Not Recovered/Not Resolved]
  - Pain [Not Recovered/Not Resolved]
  - Swelling [Not Recovered/Not Resolved]
  - Burning sensation [Not Recovered/Not Resolved]
  - Thrombosis [Unknown]
  - Rheumatoid arthritis [Not Recovered/Not Resolved]
  - Musculoskeletal stiffness [Not Recovered/Not Resolved]

NARRATIVE: CASE EVENT DATE: 201409
